FAERS Safety Report 12177525 (Version 1)
Quarter: 2016Q1

REPORT INFORMATION
  Report Type: Spontaneous
  Country: US (occurrence: US)
  Receive Date: 20160314
  Receipt Date: 20160314
  Transmission Date: 20160526
  Serious: No
  Sender: FDA-Public Use
  Company Number: US-TEVA-639119USA

PATIENT
  Age: 69 Year
  Sex: Female

DRUGS (12)
  1. AALENDRONATE [Concomitant]
  2. AVONEX [Concomitant]
     Active Substance: INTERFERON BETA-1A
  3. RANITADINE [Concomitant]
  4. FLUOXETINE [Concomitant]
     Active Substance: FLUOXETINE HYDROCHLORIDE
  5. PROPRANOLOL [Concomitant]
     Active Substance: PROPRANOLOL\PROPRANOLOL HYDROCHLORIDE
  6. MODAFINIL. [Concomitant]
     Active Substance: MODAFINIL
  7. OLANZAPINE. [Concomitant]
     Active Substance: OLANZAPINE
  8. COPAXONE [Suspect]
     Active Substance: GLATIRAMER ACETATE
     Indication: MULTIPLE SCLEROSIS
     Route: 058
     Dates: start: 20140321, end: 20160223
  9. GABAPENTIN. [Concomitant]
     Active Substance: GABAPENTIN
  10. PREDNISONE. [Concomitant]
     Active Substance: PREDNISONE
  11. AMPYRA [Concomitant]
     Active Substance: DALFAMPRIDINE
  12. OXYBUTYNIN [Concomitant]
     Active Substance: OXYBUTYNIN

REACTIONS (1)
  - Malaise [Not Recovered/Not Resolved]

NARRATIVE: CASE EVENT DATE: 201601
